FAERS Safety Report 16313450 (Version 1)
Quarter: 2019Q2

REPORT INFORMATION
  Report Type: Spontaneous
  Country: BR (occurrence: BR)
  Receive Date: 20190515
  Receipt Date: 20190515
  Transmission Date: 20190711
  Serious: Yes (Other)
  Sender: FDA-Public Use
  Company Number: BR-LEO PHARMA-318630

PATIENT
  Age: 16 Year
  Sex: Female

DRUGS (1)
  1. SKINOREN GEL [Suspect]
     Active Substance: AZELAIC ACID
     Indication: ACNE
     Dosage: 1 DF, QD
     Route: 061
     Dates: start: 20190502, end: 20190504

REACTIONS (6)
  - Application site pruritus [Unknown]
  - Application site erythema [Unknown]
  - Adverse reaction [Unknown]
  - Application site vesicles [Unknown]
  - Application site pain [Unknown]
  - Application site paraesthesia [Unknown]

NARRATIVE: CASE EVENT DATE: 20190502
